FAERS Safety Report 7608994-8 (Version None)
Quarter: 2011Q3

REPORT INFORMATION
  Report Type: 
  Country: None (occurrence: None)
  Receive Date: 20110714
  Receipt Date: 20110705
  Transmission Date: 20111222
  Serious: Yes (Hospitalization, Other)
  Sender: FDA-Public Use
  Company Number: DE-CELGENEUS-062-21880-11063190

PATIENT
  Age: 60 Year
  Sex: Female
  Weight: 106 kg

DRUGS (4)
  1. REVLIMID [Suspect]
     Indication: MULTIPLE MYELOMA
     Route: 048
  2. DEXAMETHASONE [Suspect]
     Indication: MULTIPLE MYELOMA
     Route: 065
  3. BISOPROLOL FUMARATE [Concomitant]
     Dosage: 2.5 MILLIGRAM
     Route: 048
     Dates: start: 20080130
  4. PREDNISONE [Concomitant]
     Dosage: 7.5 MILLIGRAM
     Route: 048
     Dates: start: 20090624

REACTIONS (3)
  - CYSTITIS [None]
  - RENAL FAILURE [None]
  - PANCYTOPENIA [None]
